FAERS Safety Report 5910316-5 (Version None)
Quarter: 2008Q4

REPORT INFORMATION
  Report Type: 
  Country: None (occurrence: None)
  Receive Date: 20081007
  Receipt Date: 20071120
  Transmission Date: 20090506
  Serious: Yes (Other)
  Sender: FDA-Public Use
  Company Number: US-ASTRAZENECA-2007UW26827

PATIENT
  Age: 62 Year
  Sex: Female

DRUGS (3)
  1. ARIMIDEX [Suspect]
     Indication: BREAST CANCER
     Route: 048
     Dates: end: 20061201
  2. TAMOXIFEN CITRATE [Concomitant]
     Route: 048
  3. TAMOXIFEN CITRATE [Concomitant]
     Route: 048

REACTIONS (2)
  - DISEASE PROGRESSION [None]
  - DISEASE RECURRENCE [None]
